FAERS Safety Report 4835488-5 (Version None)
Quarter: 2005Q4

REPORT INFORMATION
  Report Type: 
  Country: None (occurrence: None)
  Receive Date: 20051121
  Receipt Date: 20051108
  Transmission Date: 20060501
  Serious: Yes (Hospitalization)
  Sender: FDA-Public Use
  Company Number: 2005146631

PATIENT
  Age: 16 Year
  Sex: Female
  Weight: 46.2669 kg

DRUGS (3)
  1. DEPO-PROVERA [Suspect]
     Indication: DYSMENORRHOEA
     Dosage: 150 MG (150 MG, 1 ST INJECTION, EVERY 3 MONTHS)
     Dates: start: 20050708, end: 20050708
  2. CARBATOL (CARBAMAZEPINE) [Concomitant]
  3. FOLIC ACID [Concomitant]

REACTIONS (1)
  - PNEUMONIA [None]
